FAERS Safety Report 21009983 (Version 1)
Quarter: 2022Q2

REPORT INFORMATION
  Report Type: Spontaneous
  Country: None (occurrence: US)
  Receive Date: 20220627
  Receipt Date: 20220627
  Transmission Date: 20220720
  Serious: No
  Sender: FDA-Public Use
  Company Number: US-DENDREON PHARMACEUTICAL LLC-2021DEN000256

PATIENT

DRUGS (12)
  1. PROVENGE [Suspect]
     Active Substance: SIPULEUCEL-T
     Indication: Prostate cancer metastatic
     Dosage: DOSE 1
     Route: 042
     Dates: start: 20210820, end: 20210820
  2. PROVENGE [Suspect]
     Active Substance: SIPULEUCEL-T
     Dosage: DOSE 2
     Route: 042
     Dates: start: 20210903, end: 20210903
  3. PROVENGE [Suspect]
     Active Substance: SIPULEUCEL-T
     Dosage: DOSE 3
     Route: 042
     Dates: start: 20210917, end: 20210927
  4. XGEVA [Suspect]
     Active Substance: DENOSUMAB
     Dosage: DOSE 1
     Route: 041
     Dates: start: 20210820, end: 20210820
  5. XGEVA [Suspect]
     Active Substance: DENOSUMAB
     Dosage: DOSE 2
     Route: 041
     Dates: start: 20210903, end: 20210903
  6. FIRMAGON [Suspect]
     Active Substance: DEGARELIX ACETATE
  7. XTANDI [Concomitant]
     Active Substance: ENZALUTAMIDE
  8. LISINOPRIL [Concomitant]
     Active Substance: LISINOPRIL
  9. GABAPENTIN [Concomitant]
     Active Substance: GABAPENTIN
  10. METFORMIN [Concomitant]
     Active Substance: METFORMIN HYDROCHLORIDE
     Indication: Diabetes mellitus
  11. PEPCID AC [Concomitant]
     Active Substance: FAMOTIDINE
     Indication: Prophylaxis
  12. FAMOTIDINE [Concomitant]
     Active Substance: FAMOTIDINE
     Indication: Prophylaxis

REACTIONS (7)
  - Petit mal epilepsy [Recovering/Resolving]
  - Hypokalaemia [Recovered/Resolved]
  - Fall [Recovering/Resolving]
  - Skin laceration [Recovered/Resolved]
  - Muscular weakness [Recovered/Resolved]
  - Dehydration [Recovered/Resolved]
  - Chills [Recovered/Resolved]

NARRATIVE: CASE EVENT DATE: 20210901
